FAERS Safety Report 5975061-9 (Version None)
Quarter: 2008Q4

REPORT INFORMATION
  Report Type: 
  Country: None (occurrence: None)
  Receive Date: 20081202
  Receipt Date: 20081126
  Transmission Date: 20090506
  Serious: Yes (Death, Other)
  Sender: FDA-Public Use
  Company Number: JP-BRISTOL-MYERS SQUIBB COMPANY-14416812

PATIENT
  Age: 59 Year
  Sex: Female

DRUGS (3)
  1. TAXOL [Suspect]
     Indication: BREAST CANCER
     Route: 041
  2. MITOMYCIN [Suspect]
     Indication: BREAST CANCER
     Route: 065
  3. TAMOXIFEN [Suspect]
     Indication: BREAST CANCER
     Route: 048

REACTIONS (1)
  - ACUTE MYELOID LEUKAEMIA [None]
